FAERS Safety Report 16385099 (Version 2)
Quarter: 2019Q3

REPORT INFORMATION
  Report Type: Spontaneous
  Country: US (occurrence: US)
  Receive Date: 20190603
  Receipt Date: 20190829
  Transmission Date: 20191004
  Serious: Yes (Other)
  Sender: FDA-Public Use
  Company Number: US-BAUSCH-BL-2019-015804

PATIENT
  Age: 49 Year
  Sex: Female

DRUGS (2)
  1. SILIQ [Suspect]
     Active Substance: BRODALUMAB
     Dosage: ONE INJECTION EVERY 2 WEEKS
     Route: 058
     Dates: start: 2019, end: 20190810
  2. SILIQ [Suspect]
     Active Substance: BRODALUMAB
     Indication: PSORIASIS
     Dosage: ONE INJECTION AT WEEKS 0, 1, AND 2
     Route: 058
     Dates: start: 201901, end: 2019

REACTIONS (6)
  - Therapeutic response unexpected [Unknown]
  - Uveitis [Unknown]
  - Insurance issue [Unknown]
  - Psoriasis [Unknown]
  - Arthralgia [Unknown]
  - Therapy cessation [Unknown]

NARRATIVE: CASE EVENT DATE: 2019
